FAERS Safety Report 13676394 (Version 2)
Quarter: 2017Q2

REPORT INFORMATION
  Report Type: Report from Study
  Country: None (occurrence: TW)
  Receive Date: 20170622
  Receipt Date: 20170627
  Transmission Date: 20170830
  Serious: Yes (Death, Other)
  Sender: FDA-Public Use
  Company Number: TW-ABBVIE-17K-153-2014231-00

PATIENT
  Age: 60 Year
  Sex: Female
  Weight: 78 kg

DRUGS (8)
  1. METHOTREXATE. [Concomitant]
     Active Substance: METHOTREXATE
     Indication: RHEUMATOID ARTHRITIS
     Route: 048
  2. GENIQUIN [Concomitant]
     Indication: RHEUMATOID ARTHRITIS
     Route: 048
  3. COMPESOLON [Concomitant]
     Active Substance: PREDNISOLONE
     Indication: RHEUMATOID ARTHRITIS
     Route: 048
  4. HUMIRA [Suspect]
     Active Substance: ADALIMUMAB
     Indication: RHEUMATOID ARTHRITIS
     Route: 058
     Dates: start: 20160607, end: 20170523
  5. FOLIC ACID. [Concomitant]
     Active Substance: FOLIC ACID
     Indication: RHEUMATOID ARTHRITIS
     Route: 048
  6. CELEBREX [Concomitant]
     Active Substance: CELECOXIB
     Indication: RHEUMATOID ARTHRITIS
     Route: 048
  7. DEFENSE [Concomitant]
     Indication: RHEUMATOID ARTHRITIS
     Route: 048
  8. SALAZINE [Concomitant]
     Active Substance: SULFASALAZINE
     Indication: RHEUMATOID ARTHRITIS
     Route: 048

REACTIONS (3)
  - Biliary tract infection [Fatal]
  - Bile duct obstruction [Fatal]
  - Sepsis [Fatal]

NARRATIVE: CASE EVENT DATE: 20170531
